FAERS Safety Report 10512560 (Version 3)
Quarter: 2015Q3

REPORT INFORMATION
  Report Type: Report from Study
  Country: CA (occurrence: CA)
  Receive Date: 20141011
  Receipt Date: 20150724
  Transmission Date: 20151125
  Serious: Yes (Life-Threatening, Hospitalization)
  Sender: FDA-Public Use
  Company Number: PHHY2014CA117331

PATIENT
  Age: 40 Year
  Sex: Male

DRUGS (5)
  1. COGENTIN [Concomitant]
     Active Substance: BENZTROPINE MESYLATE
     Indication: PRODUCT USED FOR UNKNOWN INDICATION
     Route: 065
  2. PAXIL [Concomitant]
     Active Substance: PAROXETINE HYDROCHLORIDE
     Indication: PRODUCT USED FOR UNKNOWN INDICATION
     Dosage: 10 MG, UNK
     Route: 065
  3. ABILIFY [Concomitant]
     Active Substance: ARIPIPRAZOLE
     Indication: PRODUCT USED FOR UNKNOWN INDICATION
     Dosage: 20 MG, UNK
     Route: 065
  4. CLOZARIL [Suspect]
     Active Substance: CLOZAPINE
     Indication: PRODUCT USED FOR UNKNOWN INDICATION
     Dosage: 350 MG, DAILY
     Route: 048
     Dates: start: 20040211, end: 20140908
  5. EPIVAL [Concomitant]
     Active Substance: DIVALPROEX SODIUM
     Indication: PRODUCT USED FOR UNKNOWN INDICATION
     Dosage: 750 MG, BID
     Route: 065

REACTIONS (23)
  - Neutropenia [Unknown]
  - Leukopenia [Unknown]
  - Asthenia [Unknown]
  - Cough [Unknown]
  - Pyrexia [Recovered/Resolved]
  - Agitation [Unknown]
  - Pneumonia [Unknown]
  - Retroperitoneal lymphadenopathy [Unknown]
  - Thrombocytopenia [Unknown]
  - Schizophrenia, disorganised type [Unknown]
  - Viral infection [Recovered/Resolved]
  - Pleural effusion [Unknown]
  - Haemoglobin decreased [Unknown]
  - Agranulocytosis [Unknown]
  - Abnormal behaviour [Unknown]
  - Lymphadenopathy [Unknown]
  - Lymphadenopathy mediastinal [Unknown]
  - Pancytopenia [Recovered/Resolved]
  - Hypothermia [Unknown]
  - Splenomegaly [Unknown]
  - Dizziness [Unknown]
  - Chills [Unknown]
  - Delirium [Unknown]

NARRATIVE: CASE EVENT DATE: 20140908
